FAERS Safety Report 14311309 (Version 1)
Quarter: 2017Q4

REPORT INFORMATION
  Report Type: Spontaneous
  Country: US (occurrence: US)
  Receive Date: 20171221
  Receipt Date: 20171221
  Transmission Date: 20180321
  Serious: No
  Sender: FDA-Public Use
  Company Number: US-TEVA-758684ACC

PATIENT
  Sex: Female

DRUGS (1)
  1. DORZOLAMIDE HYDROCHLORIDE OPHTHALMIC SOLUTION [Suspect]
     Active Substance: DORZOLAMIDE HYDROCHLORIDE
     Indication: GLAUCOMA
     Dosage: OPHTHALMIC SOLUTION

REACTIONS (4)
  - Product closure issue [Unknown]
  - Eye pain [Not Recovered/Not Resolved]
  - Product physical issue [Unknown]
  - Superficial injury of eye [Not Recovered/Not Resolved]

NARRATIVE: CASE EVENT DATE: 20170327
